FAERS Safety Report 12210168 (Version 1)
Quarter: 2016Q1

REPORT INFORMATION
  Report Type: Spontaneous
  Country: US (occurrence: None)
  Receive Date: 20160324
  Receipt Date: 20160324
  Transmission Date: 20160526
  Serious: No
  Sender: FDA-Public Use
  Company Number: None

PATIENT
  Sex: Male

DRUGS (3)
  1. TOUJEO [Suspect]
     Active Substance: INSULIN GLARGINE
  2. HUMALOG [Suspect]
     Active Substance: INSULIN LISPRO
  3. PRADAXA [Suspect]
     Active Substance: DABIGATRAN ETEXILATE MESYLATE

REACTIONS (14)
  - Pollakiuria [None]
  - Peripheral swelling [None]
  - Drug effect decreased [None]
  - Neuropathy peripheral [None]
  - Somnolence [None]
  - Skin ulcer [None]
  - Arthropathy [None]
  - Impaired healing [None]
  - Weight increased [None]
  - Insomnia [None]
  - Blood glucose increased [None]
  - Heart rate irregular [None]
  - Blindness unilateral [None]
  - Hypoaesthesia [None]
